FAERS Safety Report 5305139-4 (Version None)
Quarter: 2007Q2

REPORT INFORMATION
  Report Type: 
  Country: None (occurrence: None)
  Receive Date: 20070417
  Receipt Date: 20070409
  Transmission Date: 20071010
  Serious: Yes (Hospitalization)
  Sender: FDA-Public Use
  Company Number: 232746K07USA

PATIENT
  Sex: Female

DRUGS (1)
  1. REBIF (NTERFERON BETA) [Suspect]
     Indication: MULTIPLE SCLEROSIS

REACTIONS (3)
  - DEPRESSION [None]
  - NAUSEA [None]
  - VOMITING [None]
